FAERS Safety Report 5891753-4 (Version None)
Quarter: 2008Q3

REPORT INFORMATION
  Report Type: 
  Country: None (occurrence: None)
  Receive Date: 20080908
  Receipt Date: 20080806
  Transmission Date: 20090109
  Serious: No
  Sender: FDA-Public Use
  Company Number: 002#2#2008-00624

PATIENT
  Age: 80 Year
  Sex: Female
  Weight: 47.6277 kg

DRUGS (8)
  1. NEUPRO [Suspect]
     Indication: DEMENTIA WITH LEWY BODIES
     Dosage: 2MG/24H, 1 IN 1 D, TRANSDERMAL : 4MG/24H, 1 IN 1 D, TRANSDERMAL
     Route: 062
     Dates: end: 20080501
  2. NEUPRO [Suspect]
     Indication: PARKINSON'S DISEASE
     Dosage: 2MG/24H, 1 IN 1 D, TRANSDERMAL : 4MG/24H, 1 IN 1 D, TRANSDERMAL
     Route: 062
     Dates: end: 20080501
  3. NEUPRO [Suspect]
     Indication: DEMENTIA WITH LEWY BODIES
     Dosage: 2MG/24H, 1 IN 1 D, TRANSDERMAL : 4MG/24H, 1 IN 1 D, TRANSDERMAL
     Route: 062
     Dates: start: 20070101
  4. NEUPRO [Suspect]
     Indication: PARKINSON'S DISEASE
     Dosage: 2MG/24H, 1 IN 1 D, TRANSDERMAL : 4MG/24H, 1 IN 1 D, TRANSDERMAL
     Route: 062
     Dates: start: 20070101
  5. NEUPRO [Suspect]
     Indication: DEMENTIA WITH LEWY BODIES
     Dosage: 2MG/24H, 1 IN 1 D, TRANSDERMAL : 4MG/24H, 1 IN 1 D, TRANSDERMAL
     Route: 062
     Dates: start: 20080601
  6. NEUPRO [Suspect]
     Indication: PARKINSON'S DISEASE
     Dosage: 2MG/24H, 1 IN 1 D, TRANSDERMAL : 4MG/24H, 1 IN 1 D, TRANSDERMAL
     Route: 062
     Dates: start: 20080601
  7. ARICEPT [Concomitant]
  8. SEROQUEL [Concomitant]

REACTIONS (2)
  - PARKINSON'S DISEASE [None]
  - WRONG TECHNIQUE IN DRUG USAGE PROCESS [None]
